FAERS Safety Report 8421758-0 (Version None)
Quarter: 2012Q2

REPORT INFORMATION
  Report Type: 
  Country: None (occurrence: None)
  Receive Date: 20120608
  Receipt Date: 20120604
  Transmission Date: 20120825
  Serious: Yes (Death)
  Sender: FDA-Public Use
  Company Number: FR-BRISTOL-MYERS SQUIBB COMPANY-16666257

PATIENT
  Age: 55 Year
  Sex: Male

DRUGS (13)
  1. VALSARTAN  AND HYDROCHLOROTHIAZIDE [Suspect]
     Dosage: TAB
     Route: 048
     Dates: end: 20120417
  2. VENLAFAXINE HCL [Suspect]
     Dosage: 1 DF: 75 MG, PROLONGED RELEASE CAPSULE
     Route: 048
     Dates: end: 20120417
  3. SEROQUEL [Suspect]
     Dosage: PROLONGED RELEASE TAB
     Route: 048
     Dates: start: 20120416, end: 20120416
  4. TRIMEPRAZINE TARTRATE [Suspect]
     Dosage: ORAL SOLUTION
     Route: 048
     Dates: end: 20120416
  5. ALPRAZOLAM [Suspect]
     Route: 048
     Dates: end: 20120417
  6. LERCANIDIPINE [Suspect]
     Dosage: LERCANIDIPINE 10MG TAB
     Route: 048
     Dates: end: 20120417
  7. NEXIUM [Suspect]
     Dosage: INEXIUM 20MG GASTRORESISTANT TAB
     Route: 048
     Dates: end: 20120417
  8. ZOLPIDEM [Suspect]
     Dosage: TAB
     Route: 048
     Dates: end: 20120416
  9. FENOFIBRATE [Suspect]
     Dosage: 200 MG CAPSULE
     Route: 048
     Dates: end: 20120417
  10. GLYBURIDE [Suspect]
     Dosage: DAONIL 5 MG TAB
     Route: 048
     Dates: end: 20120417
  11. OLANZAPINE [Suspect]
     Dosage: OLANZEPINE 5MG ORODISPERSIBLE TAB
     Route: 048
     Dates: end: 20120417
  12. ALFUZOSIN HCL [Suspect]
     Dosage: XATRAL 10MG PROLONGED RELEASE TABLET
     Route: 048
     Dates: end: 20120417
  13. GLUCOPHAGE [Suspect]
     Route: 048
     Dates: end: 20120417

REACTIONS (3)
  - SUDDEN DEATH [None]
  - DEPRESSION [None]
  - VOMITING [None]
